FAERS Safety Report 7484895-3 (Version None)
Quarter: 2011Q2

REPORT INFORMATION
  Report Type: 
  Country: None (occurrence: None)
  Receive Date: 20110517
  Receipt Date: 20110509
  Transmission Date: 20111010
  Serious: Yes (Hospitalization)
  Sender: FDA-Public Use
  Company Number: A0926588A

PATIENT
  Age: 82 Year
  Sex: Female

DRUGS (3)
  1. UNKNOWN MEDICATION [Suspect]
     Route: 065
  2. ARIXTRA [Suspect]
     Dosage: 2.5MG UNKNOWN
     Route: 058
     Dates: start: 20110301
  3. CONCURRENT MEDICATIONS [Concomitant]

REACTIONS (1)
  - LOSS OF CONSCIOUSNESS [None]
